FAERS Safety Report 13060491 (Version 1)
Quarter: 2016Q4

REPORT INFORMATION
  Report Type: Spontaneous
  Country: US (occurrence: US)
  Receive Date: 20161224
  Receipt Date: 20161224
  Transmission Date: 20170207
  Serious: Yes (Other)
  Sender: FDA-Public Use
  Company Number: US-AMGEN-USASP2016165500

PATIENT
  Age: 55 Year
  Sex: Female
  Weight: 51.7 kg

DRUGS (5)
  1. RITUXAN [Concomitant]
     Active Substance: RITUXIMAB
     Indication: NEOPLASM MALIGNANT
     Dosage: UNK
     Route: 042
  2. PREDNISONE. [Concomitant]
     Active Substance: PREDNISONE
     Indication: ADVERSE EVENT
     Dosage: 10 MG, BID (2 TABLETS)
     Route: 048
  3. PROCRIT [Suspect]
     Active Substance: ERYTHROPOIETIN
     Indication: WALDENSTROM^S MACROGLOBULINAEMIA
     Dosage: 40000 UNIT, UNK
     Route: 058
     Dates: start: 201611
  4. PROCRIT [Suspect]
     Active Substance: ERYTHROPOIETIN
     Indication: NON-HODGKIN^S LYMPHOMA STAGE IV
     Dosage: 40000 UNIT, UNK
     Route: 058
     Dates: end: 201611
  5. VELCADE [Concomitant]
     Active Substance: BORTEZOMIB
     Indication: NEOPLASM MALIGNANT
     Dosage: UNK UNK, 2 TIMES/WK
     Route: 058
     Dates: start: 20161110, end: 20161110

REACTIONS (14)
  - Movement disorder [Recovered/Resolved]
  - Arthralgia [Recovered/Resolved]
  - Eyelid disorder [Recovered/Resolved]
  - Trismus [Recovered/Resolved]
  - Pain [Recovered/Resolved]
  - Bone pain [Recovered/Resolved]
  - Dysstasia [Recovered/Resolved]
  - Abasia [Recovered/Resolved]
  - Pain in extremity [Recovered/Resolved]
  - Musculoskeletal chest pain [Recovered/Resolved]
  - Tinnitus [Not Recovered/Not Resolved]
  - Musculoskeletal discomfort [Recovered/Resolved]
  - Dysphagia [Recovered/Resolved]
  - Pain in jaw [Not Recovered/Not Resolved]

NARRATIVE: CASE EVENT DATE: 201611
